FAERS Safety Report 8958119 (Version 2)
Quarter: 2012Q4

REPORT INFORMATION
  Report Type: 
  Country: NL (occurrence: NL)
  Receive Date: 20121211
  Receipt Date: 20121227
  Transmission Date: 20130627
  Serious: Yes (Hospitalization)
  Sender: FDA-Public Use
  Company Number: NL-AMGEN-NLDSP2012078933

PATIENT
  Age: 54 Year
  Sex: Female

DRUGS (6)
  1. NEULASTA [Suspect]
     Indication: PRODUCT USED FOR UNKNOWN INDICATION
     Dosage: 6 mg, q3wk
     Route: 058
     Dates: start: 20121113
  2. CHEMOTHERAPEUTICS [Concomitant]
     Dosage: UNK
  3. EMEND                              /01627301/ [Concomitant]
     Dosage: UNK
  4. DEXAMETHASONE [Concomitant]
     Dosage: UNK
  5. CIPROFLOXACINE                     /00697201/ [Concomitant]
     Dosage: UNK
  6. METOCLOPRAMIDE [Concomitant]
     Dosage: UNK

REACTIONS (4)
  - Pyrexia [Recovered/Resolved]
  - Platelet count decreased [Recovered/Resolved]
  - Bacterial infection [Recovered/Resolved]
  - Bone pain [Recovered/Resolved]
